FAERS Safety Report 7623833-7 (Version None)
Quarter: 2011Q3

REPORT INFORMATION
  Report Type: 
  Country: None (occurrence: None)
  Receive Date: 20110720
  Receipt Date: 20110719
  Transmission Date: 20111222
  Serious: No
  Sender: FDA-Public Use
  Company Number: US-PFIZER INC-2011163832

PATIENT
  Sex: Male
  Weight: 72 kg

DRUGS (1)
  1. CHANTIX [Suspect]
     Indication: SMOKING CESSATION THERAPY
     Dosage: 0.5 MG, 1X/DAY
     Route: 048
     Dates: start: 20110718, end: 20110719

REACTIONS (4)
  - HYPERHIDROSIS [None]
  - ABNORMAL DREAMS [None]
  - NAUSEA [None]
  - DIZZINESS [None]
